FAERS Safety Report 9745613 (Version 1)
Quarter: 2013Q4

REPORT INFORMATION
  Report Type: Spontaneous
  Country: FR (occurrence: FR)
  Receive Date: 20131211
  Receipt Date: 20131211
  Transmission Date: 20140711
  Serious: Yes (Hospitalization, Disabling)
  Sender: FDA-Public Use
  Company Number: FR-NOVOPROD-394648

PATIENT
  Age: 33 Year
  Sex: Female

DRUGS (9)
  1. NOVOSEVEN [Suspect]
     Indication: PRODUCT USED FOR UNKNOWN INDICATION
     Dosage: 5 MG, QD
     Route: 042
     Dates: start: 20131002, end: 20131002
  2. EXACYL [Suspect]
     Indication: PRODUCT USED FOR UNKNOWN INDICATION
     Dosage: 2.50 G, QD (0.5G/5 ML)
     Route: 042
     Dates: start: 20131002, end: 20131002
  3. NALADOR [Suspect]
     Indication: PRODUCT USED FOR UNKNOWN INDICATION
     Dosage: 2 VIALS
     Route: 042
     Dates: start: 20131002, end: 20131002
  4. CLOTTAFACT [Suspect]
     Indication: PRODUCT USED FOR UNKNOWN INDICATION
     Dosage: 4.50 G, QD (1.5 G/100 ML, 3 FLACONS)
     Route: 042
     Dates: start: 20131002, end: 20131002
  5. RINGER LACTATE VIAFLO [Suspect]
     Indication: PRODUCT USED FOR UNKNOWN INDICATION
     Dosage: 3 LITERS
     Route: 042
     Dates: start: 20131002, end: 20131002
  6. VOLUVEN /00375601/ [Suspect]
     Indication: PRODUCT USED FOR UNKNOWN INDICATION
     Dosage: 1.5 L, QD
     Route: 042
     Dates: start: 20131002, end: 20131002
  7. NEO-SYNEPHRINE                     /00070002/ [Concomitant]
     Dosage: UNK
  8. CEFAZOLINE [Concomitant]
     Dosage: 2G
  9. AUGMENTIN                          /00756801/ [Concomitant]
     Dosage: 2G

REACTIONS (2)
  - Renal failure acute [Recovered/Resolved with Sequelae]
  - Renal cortical necrosis [Not Recovered/Not Resolved]
